FAERS Safety Report 21584840 (Version 3)
Quarter: 2022Q4

REPORT INFORMATION
  Report Type: Report from Study
  Country: TR (occurrence: TR)
  Receive Date: 20221111
  Receipt Date: 20221126
  Transmission Date: 20230113
  Serious: Yes (Death, Hospitalization)
  Sender: FDA-Public Use
  Company Number: TR-ABBVIE-22K-161-4517644-00

PATIENT
  Age: 65 Year
  Sex: Male
  Weight: 110 kg

DRUGS (10)
  1. CARBIDOPA\LEVODOPA [Suspect]
     Active Substance: CARBIDOPA\LEVODOPA
     Indication: Parkinson^s disease
     Dosage: MORNING DOSE (ML): 8.50 CONTINIOUS DOSE (ML): 6.50 EXTRA DOSE (ML): 3.00
     Route: 050
     Dates: start: 20161021
  2. CARBIDOPA\LEVODOPA [Suspect]
     Active Substance: CARBIDOPA\LEVODOPA
  3. MISOL [Concomitant]
     Indication: Depression
     Dosage: SERTRALINE?50 MILLIGRAM
     Route: 048
     Dates: start: 2013
  4. ATIVAN [Concomitant]
     Active Substance: LORAZEPAM
     Indication: Depression
     Dosage: FORM STRENGTH 1 MILLIGRAM
     Route: 048
  5. ASPIRIN [Concomitant]
     Active Substance: ASPIRIN
     Indication: Cerebral vascular occlusion
     Dosage: ACETYLSALICYLIC ACID?100 MILLIGRAM
     Route: 048
     Dates: start: 2016
  6. EUTHYROX [Concomitant]
     Active Substance: LEVOTHYROXINE SODIUM
     Indication: Hypothyroidism
     Dosage: LEVOTHYROXIN?100 MICROGRAM
     Route: 048
     Dates: start: 2013
  7. LYRICA [Concomitant]
     Active Substance: PREGABALIN
     Indication: Neuralgia
     Dosage: 50 MILLIGRAM
     Route: 048
  8. REQUIP [Concomitant]
     Active Substance: ROPINIROLE HYDROCHLORIDE
     Indication: Parkinson^s disease
     Dosage: 16 MG
     Route: 048
  9. AMANTADINE SULFATE [Concomitant]
     Active Substance: AMANTADINE SULFATE
     Indication: Parkinson^s disease
     Dosage: 400MG
     Route: 048
     Dates: start: 2015
  10. SINEMET [Concomitant]
     Active Substance: CARBIDOPA\LEVODOPA
     Indication: Parkinson^s disease
     Dosage: 500 MILLIGRAM
     Route: 048

REACTIONS (10)
  - Death [Fatal]
  - Pneumonia [Recovering/Resolving]
  - Pneumothorax [Not Recovered/Not Resolved]
  - Device dislocation [Not Recovered/Not Resolved]
  - Nausea [Recovered/Resolved]
  - Vomiting [Recovered/Resolved]
  - Chest tube insertion [Recovered/Resolved]
  - Hallucination [Recovering/Resolving]
  - Parkinson^s disease [Recovering/Resolving]
  - Confusional state [Not Recovered/Not Resolved]

NARRATIVE: CASE EVENT DATE: 20220825
